FAERS Safety Report 9214034 (Version 1)
Quarter: 2013Q2

REPORT INFORMATION
  Report Type: Spontaneous
  Country: US (occurrence: US)
  Receive Date: 20130404
  Receipt Date: 20130404
  Transmission Date: 20140414
  Serious: Yes (Other)
  Sender: FDA-Public Use
  Company Number: US-RB-051842-13

PATIENT
  Age: 0 Year
  Sex: Female

DRUGS (4)
  1. GENERIC BUPRENORPHINE [Suspect]
     Indication: DRUG DEPENDENCE
     Route: 064
     Dates: start: 201011, end: 20110803
  2. GENERIC BUPRENORPHINE [Suspect]
     Route: 063
     Dates: start: 20110803, end: 201111
  3. NICOTINE [Suspect]
     Indication: NICOTINE DEPENDENCE
     Dosage: 1 CIGARET DAILY
     Route: 064
     Dates: start: 201011, end: 201012
  4. PRENATAL VITAMINS [Suspect]
     Indication: PREGNANCY
     Dosage: 1 TABLET DAILY
     Route: 064
     Dates: end: 20110803

REACTIONS (4)
  - Foetal exposure during pregnancy [Recovered/Resolved]
  - Low birth weight baby [Recovered/Resolved]
  - Exposure during breast feeding [Recovered/Resolved]
  - Drug withdrawal syndrome neonatal [Recovered/Resolved]
